FAERS Safety Report 5882374-8 (Version None)
Quarter: 2008Q3

REPORT INFORMATION
  Report Type: 
  Country: None (occurrence: None)
  Receive Date: 20080913
  Receipt Date: 20080801
  Transmission Date: 20090109
  Serious: No
  Sender: FDA-Public Use
  Company Number: US-ABBOTT-08P-163-0468449-00

PATIENT
  Sex: Female

DRUGS (16)
  1. HUMIRA [Suspect]
     Indication: ARTHRITIS
     Route: 058
     Dates: start: 20080523
  2. TRAZODONE HCL [Concomitant]
     Indication: INSOMNIA
     Dosage: 100 MG EVERY NIGHT
  3. CITALOPRAM HYDROBROMIDE [Concomitant]
     Indication: DEPRESSION
  4. AMLODIPINE MALEATE [Concomitant]
     Indication: BLOOD PRESSURE
  5. POTASSIUM CHLORIDE [Concomitant]
     Indication: MINERAL SUPPLEMENTATION
  6. FUROSEMIDE [Concomitant]
     Indication: BLOOD PRESSURE
     Dosage: TWO IN AM
  7. SULFASALAZINE [Concomitant]
     Indication: ARTHRITIS
     Dosage: 2 TAB TWICE PER DAY
  8. DONEPEZIL HCL [Concomitant]
     Indication: MEMORY IMPAIRMENT
  9. CELECOXIB [Concomitant]
     Indication: ARTHRITIS
  10. METHOTREXATE [Concomitant]
     Indication: ARTHRITIS
     Dosage: PER WEEK
  11. ATORVASTATIN CALCIUM [Concomitant]
     Indication: BLOOD CHOLESTEROL
  12. TYLOX [Concomitant]
     Indication: PAIN
     Dosage: ONE OR TWO EVERY 4-6 HOURS AS NEEDED
  13. OMEPRAZOLE MAGNESIUM [Concomitant]
     Indication: GASTROOESOPHAGEAL REFLUX DISEASE
  14. ALENDRONATE SODIUM [Concomitant]
     Indication: OSTEOPOROSIS
  15. WARFARIN SODIUM [Concomitant]
     Indication: THROMBOSIS PROPHYLAXIS
     Dosage: AS DIRECTED
  16. FOLIC ACID [Concomitant]
     Indication: VITAMIN SUPPLEMENTATION
     Dosage: TWICE A DAY

REACTIONS (2)
  - INJECTION SITE PAIN [None]
  - UNDERDOSE [None]
